FAERS Safety Report 9085012 (Version 1)
Quarter: 2013Q1

REPORT INFORMATION
  Report Type: Spontaneous
  Country: IE (occurrence: IE)
  Receive Date: 20130130
  Receipt Date: 20130130
  Transmission Date: 20140127
  Serious: Yes (Death)
  Sender: FDA-Public Use
  Company Number: PHHY2013IE008061

PATIENT
  Sex: Male

DRUGS (4)
  1. TOBRAMYCIN [Suspect]
     Indication: PSEUDOMONAS INFECTION
     Dosage: UNK
  2. CIPROFLOXACIN [Concomitant]
     Dosage: UNK
  3. AZITHROMYCIN [Concomitant]
     Dosage: UNK
  4. COLOMYCIN [Concomitant]
     Dosage: UNK

REACTIONS (3)
  - Respiratory distress [Fatal]
  - Respiratory failure [Fatal]
  - Drug ineffective [Unknown]
